FAERS Safety Report 9774749 (Version 1)
Quarter: 2013Q4

REPORT INFORMATION
  Report Type: Spontaneous
  Country: US (occurrence: None)
  Receive Date: 20131219
  Receipt Date: 20131219
  Transmission Date: 20140711
  Serious: Yes (Other)
  Sender: FDA-Public Use
  Company Number: None

PATIENT
  Age: 45 Year
  Sex: Male

DRUGS (1)
  1. TRAMADOL [Suspect]
     Route: 048
     Dates: start: 20131218, end: 20131218

REACTIONS (1)
  - Muscle spasms [None]
